FAERS Safety Report 8002864-1 (Version None)
Quarter: 2011Q4

REPORT INFORMATION
  Report Type: 
  Country: None (occurrence: None)
  Receive Date: 20111222
  Receipt Date: 20110104
  Transmission Date: 20120403
  Serious: No
  Sender: FDA-Public Use
  Company Number: US-GLAXOSMITHKLINE-A0902853A

PATIENT
  Age: 85 Year
  Sex: Male

DRUGS (4)
  1. SIMVASTATIN [Concomitant]
  2. ATENOLOL [Concomitant]
  3. AVODART [Suspect]
     Indication: PROSTATOMEGALY
     Route: 048
     Dates: start: 20100222, end: 20101216
  4. ALLOPURINOL [Concomitant]

REACTIONS (3)
  - MOOD ALTERED [None]
  - PENILE SIZE REDUCED [None]
  - BREAST SWELLING [None]
